FAERS Safety Report 17449209 (Version 1)
Quarter: 2020Q1

REPORT INFORMATION
  Report Type: Report from Study
  Country: IT (occurrence: IT)
  Receive Date: 20200224
  Receipt Date: 20200224
  Transmission Date: 20200409
  Serious: Yes (Hospitalization)
  Sender: FDA-Public Use
  Company Number: IT-TEVA-2020-IT-1190713

PATIENT
  Age: 42 Year
  Sex: Male

DRUGS (5)
  1. DEPAKIN 500 MG COMPRESSE GASTRORESISTENTI [Suspect]
     Active Substance: VALPROATE SODIUM
     Route: 048
     Dates: start: 20200111, end: 20200111
  2. RISPERIDONE. [Suspect]
     Active Substance: RISPERIDONE
     Dosage: 2 DOSAGEFORM
     Route: 048
     Dates: start: 20200111, end: 20200111
  3. DULOXETINE ZENTIVA 60 MG GASTRO-RESISTANT HARD CAPSULES [Suspect]
     Active Substance: DULOXETINE HYDROCHLORIDE
     Route: 048
     Dates: start: 20200111, end: 20200111
  4. DEPAKIN CHRONO 300 MG COMPRESSE A RILASCIO PROLUNGATO [Suspect]
     Active Substance: VALPROIC ACID
     Route: 048
     Dates: start: 20200111, end: 20200111
  5. DULOXETINE HYDROCHLORIDE. [Suspect]
     Active Substance: DULOXETINE HYDROCHLORIDE
     Dosage: 14 DOSAGEFORM
     Route: 048
     Dates: start: 20200111, end: 20200111

REACTIONS (3)
  - Hyperhidrosis [Recovering/Resolving]
  - Drug abuse [Recovering/Resolving]
  - Sopor [Recovering/Resolving]

NARRATIVE: CASE EVENT DATE: 20200111
